FAERS Safety Report 6994542-2 (Version None)
Quarter: 2010Q3

REPORT INFORMATION
  Report Type: 
  Country: None (occurrence: None)
  Receive Date: 20100915
  Receipt Date: 20100915
  Transmission Date: 20110219
  Serious: Yes (Hospitalization)
  Sender: FDA-Public Use
  Company Number: None

PATIENT
  Sex: Female
  Weight: 38.5 kg

DRUGS (7)
  1. TARCEVA [Suspect]
     Dosage: 4300 MG
  2. GEMCITABINE HCL [Suspect]
     Dosage: 8640 MG
  3. ATENOLOL [Concomitant]
  4. ASPIRIN [Concomitant]
  5. ZOCOR [Concomitant]
  6. HYDROCODONE [Concomitant]
  7. DIOVAN [Concomitant]

REACTIONS (1)
  - ABDOMINAL PAIN [None]
